FAERS Safety Report 22604646 (Version 1)
Quarter: 2023Q2

REPORT INFORMATION
  Report Type: Spontaneous
  Country: CA (occurrence: CA)
  Receive Date: 20230615
  Receipt Date: 20230615
  Transmission Date: 20230721
  Serious: Yes (Hospitalization, Other)
  Sender: FDA-Public Use
  Company Number: CA-002147023-NVSC2023CA112968

PATIENT
  Age: 67 Year
  Sex: Male
  Weight: 245 kg

DRUGS (40)
  1. AMIODARONE [Suspect]
     Active Substance: AMIODARONE
     Indication: Atrial flutter
     Dosage: UNK
     Route: 048
  2. AMIODARONE [Suspect]
     Active Substance: AMIODARONE
     Indication: Cardioversion
     Dosage: 6000 MG
     Route: 048
  3. AMIODARONE [Suspect]
     Active Substance: AMIODARONE
     Indication: Prescribed overdose
     Dosage: 200 MG, Q12H
     Route: 048
  4. AMIODARONE [Suspect]
     Active Substance: AMIODARONE
     Dosage: 4800 MG
     Route: 048
  5. AMIODARONE [Suspect]
     Active Substance: AMIODARONE
     Dosage: 8000 MG
     Route: 048
  6. AMIODARONE [Suspect]
     Active Substance: AMIODARONE
     Dosage: 400 MG, Q12H
     Route: 048
  7. AMIODARONE [Suspect]
     Active Substance: AMIODARONE
     Dosage: UNK, QD
     Route: 048
  8. AMIODARONE [Suspect]
     Active Substance: AMIODARONE
     Dosage: 8000 MG
     Route: 048
  9. AMIODARONE [Suspect]
     Active Substance: AMIODARONE
     Dosage: 4800 MG
     Route: 048
  10. AMIODARONE [Suspect]
     Active Substance: AMIODARONE
     Dosage: 200 MG, BID
     Route: 048
  11. AMIODARONE [Suspect]
     Active Substance: AMIODARONE
     Dosage: 400 MG, Q24H
     Route: 048
  12. AMIODARONE [Suspect]
     Active Substance: AMIODARONE
     Dosage: 460 MG, Q24H
     Route: 048
  13. AMIODARONE [Suspect]
     Active Substance: AMIODARONE
     Dosage: 2000 MG
     Route: 048
  14. AMIODARONE [Suspect]
     Active Substance: AMIODARONE
     Dosage: 300 MG, Q24H
     Route: 048
  15. AMIODARONE [Suspect]
     Active Substance: AMIODARONE
     Dosage: 6000 MG
     Route: 048
  16. AMIODARONE [Suspect]
     Active Substance: AMIODARONE
     Dosage: 430 MG, Q24H
     Route: 048
  17. AMIODARONE [Suspect]
     Active Substance: AMIODARONE
     Dosage: 400 MG, BID
     Route: 048
  18. AMIODARONE [Suspect]
     Active Substance: AMIODARONE
     Dosage: 2000 MG
     Route: 048
  19. AMIODARONE [Suspect]
     Active Substance: AMIODARONE
     Dosage: 400 MG, QD
     Route: 048
  20. AMIODARONE [Suspect]
     Active Substance: AMIODARONE
     Dosage: 6000 MG
     Route: 048
  21. AMIODARONE [Suspect]
     Active Substance: AMIODARONE
     Dosage: 4800 MG
     Route: 048
  22. AMIODARONE [Suspect]
     Active Substance: AMIODARONE
     Dosage: 400 MG, BID
     Route: 048
  23. AMIODARONE [Suspect]
     Active Substance: AMIODARONE
     Dosage: 8000 MG
     Route: 048
  24. DIGOXIN [Suspect]
     Active Substance: DIGOXIN
     Indication: Atrial flutter
     Dosage: UNK
     Route: 065
  25. .ALPHA.-ACETYLDIGOXIN [Suspect]
     Active Substance: .ALPHA.-ACETYLDIGOXIN
     Indication: Product used for unknown indication
     Dosage: UNK
     Route: 065
  26. METOPROLOL [Suspect]
     Active Substance: METOPROLOL
     Indication: Atrial flutter
     Dosage: UNK
     Route: 065
  27. METOPROLOL [Suspect]
     Active Substance: METOPROLOL
     Dosage: UNK
     Route: 065
  28. METOPROLOL [Suspect]
     Active Substance: METOPROLOL
     Dosage: 25 MG, BID
     Route: 065
  29. METOPROLOL [Suspect]
     Active Substance: METOPROLOL
     Dosage: 75 MG, BID
     Route: 065
  30. METOPROLOL [Suspect]
     Active Substance: METOPROLOL
     Dosage: 100 MG, BID
     Route: 065
  31. APIXABAN [Concomitant]
     Active Substance: APIXABAN
     Indication: Atrial flutter
     Dosage: 5 MG, Q12H
     Route: 065
  32. APIXABAN [Concomitant]
     Active Substance: APIXABAN
     Dosage: 5 MG, BID
     Route: 065
  33. CANDESARTAN [Concomitant]
     Active Substance: CANDESARTAN
     Indication: Product used for unknown indication
     Dosage: UNK
     Route: 065
  34. CANDESARTAN [Concomitant]
     Active Substance: CANDESARTAN
     Dosage: 8 MG, QD
     Route: 065
  35. FUROSEMIDE [Concomitant]
     Active Substance: FUROSEMIDE
     Indication: Product used for unknown indication
     Dosage: 40 MG, PRN
     Route: 065
  36. FUROSEMIDE [Concomitant]
     Active Substance: FUROSEMIDE
     Dosage: 40 MG
     Route: 065
  37. INSULIN GLARGINE [Concomitant]
     Active Substance: INSULIN GLARGINE
     Indication: Product used for unknown indication
     Dosage: 48 IU, Q12H
     Route: 058
  38. INSULIN GLARGINE [Concomitant]
     Active Substance: INSULIN GLARGINE
     Dosage: UNK, BID
     Route: 058
  39. ROSUVASTATIN [Concomitant]
     Active Substance: ROSUVASTATIN
     Indication: Product used for unknown indication
     Dosage: UNK
     Route: 058
  40. ROSUVASTATIN [Concomitant]
     Active Substance: ROSUVASTATIN
     Dosage: 20 MG, QD
     Route: 065

REACTIONS (10)
  - Nodal rhythm [Not Recovered/Not Resolved]
  - Sinus arrest [Recovered/Resolved]
  - Drug level above therapeutic [Recovered/Resolved]
  - Drug level below therapeutic [Recovered/Resolved]
  - Presyncope [Not Recovered/Not Resolved]
  - Hypotension [Not Recovered/Not Resolved]
  - Drug level increased [Not Recovered/Not Resolved]
  - Off label use [Recovered/Resolved]
  - Prescribed overdose [Recovered/Resolved]
  - Drug ineffective [Recovered/Resolved]
